FAERS Safety Report 9357964 (Version 2)
Quarter: 2014Q1

REPORT INFORMATION
  Report Type: Spontaneous
  Country: AU (occurrence: None)
  Receive Date: 20130617
  Receipt Date: 20140220
  Transmission Date: 20141002
  Serious: Yes (Hospitalization, Other)
  Sender: FDA-Public Use
  Company Number: FK201301994

PATIENT
  Age: 41 Year
  Sex: Male

DRUGS (5)
  1. VALPROATE (MANUFACTURER UNKNOWN) (VALPROATE SODIUM) (VALPROATE SODIUM) [Suspect]
     Indication: PRODUCT USED FOR UNKNOWN INDICATION
     Dosage: 35 GM, 1 IN 1 ONCE, PO
     Route: 048
  2. QUETIAPINE [Suspect]
     Indication: PRODUCT USED FOR UNKNOWN INDICATION
     Dosage: 18 GM, 1 IN 1 ONCE, PO
     Route: 048
  3. CARBAMAZEPINE [Suspect]
     Indication: PRODUCT USED FOR UNKNOWN INDICATION
     Dosage: 10 GM, 1 IN 1 ONCE, PO
     Route: 048
  4. FLUOXETINE [Suspect]
     Indication: PRODUCT USED FOR UNKNOWN INDICATION
     Dosage: 240 MG, 1 IN 1 ONCE, PO
     Route: 048
  5. PRAXITEN PLIVA (OXAZEPAM) (OXAZEPAM) [Suspect]
     Indication: PRODUCT USED FOR UNKNOWN INDICATION
     Dosage: 375 MG, 1 IN 1 ONCE, PO
     Route: 048

REACTIONS (9)
  - Vasoplegia syndrome [None]
  - Acidosis [None]
  - Acidosis [None]
  - Overdose [None]
  - Coma [None]
  - Hypotension [None]
  - Shock [None]
  - Metabolic acidosis [None]
  - Pneumonia aspiration [None]
